FAERS Safety Report 15402193 (Version 3)
Quarter: 2018Q4

REPORT INFORMATION
  Report Type: Spontaneous
  Country: ZA (occurrence: ZA)
  Receive Date: 20180919
  Receipt Date: 20181009
  Transmission Date: 20190204
  Serious: Yes (Other)
  Sender: FDA-Public Use
  Company Number: ZA-PFIZER INC-2018376019

PATIENT
  Age: 64 Year
  Sex: Female

DRUGS (8)
  1. URBANOL [Suspect]
     Active Substance: CLOBAZAM
     Dosage: 10 MG, UNK
  2. MIGROBEN [Suspect]
     Active Substance: VALSARTAN
     Dosage: 80 MG, UNK
  3. PREMARIN [Suspect]
     Active Substance: ESTROGENS, CONJUGATED
     Dosage: 0.625 MG, UNK
  4. SPIRACTIN (SPIRONOLACTONE) [Suspect]
     Active Substance: SPIRONOLACTONE
     Dosage: 25 MG, UNK
  5. MYOPRIN [Suspect]
     Active Substance: ASPIRIN
     Dosage: 100 MG, UNK
  6. ELTROXIN [Suspect]
     Active Substance: LEVOTHYROXINE
     Dosage: 100 UG, UNK
  7. CALCIFEROL [COLECALCIFEROL] [Suspect]
     Active Substance: CHOLECALCIFEROL
     Dosage: 50000 IU, UNK
  8. DOVATE [Suspect]
     Active Substance: CLOBETASOL
     Dosage: 0.05 %, UNK

REACTIONS (1)
  - Bladder cancer [Unknown]
